FAERS Safety Report 4572069-5 (Version None)
Quarter: 2005Q1

REPORT INFORMATION
  Report Type: 
  Country: None (occurrence: None)
  Receive Date: 20050202
  Receipt Date: 20050117
  Transmission Date: 20050727
  Serious: Yes (Hospitalization, Other)
  Sender: FDA-Public Use
  Company Number: USA040668967

PATIENT
  Age: 79 Year
  Sex: Female
  Weight: 51 kg

DRUGS (1)
  1. FORTEO [Suspect]
     Indication: OSTEOPOROSIS
     Dosage: 20 UG DAY
     Dates: start: 20040402, end: 20050117

REACTIONS (6)
  - BREAST CANCER IN SITU [None]
  - BREAST MICROCALCIFICATION [None]
  - CONDITION AGGRAVATED [None]
  - OESTROGEN RECEPTOR ASSAY POSITIVE [None]
  - PERIODONTAL DISEASE [None]
  - PHARMACEUTICAL PRODUCT COMPLAINT [None]
